FAERS Safety Report 17609245 (Version 2)
Quarter: 2020Q3

REPORT INFORMATION
  Report Type: Spontaneous
  Country: US (occurrence: US)
  Receive Date: 20200401
  Receipt Date: 20200811
  Transmission Date: 20201102
  Serious: Yes (Other)
  Sender: FDA-Public Use
  Company Number: US-009507513-2003USA010790

PATIENT
  Age: 51 Year
  Sex: Female

DRUGS (7)
  1. ALIMTA [Suspect]
     Active Substance: PEMETREXED DISODIUM
     Indication: NON-SMALL CELL LUNG CANCER
     Dosage: UNK
     Dates: start: 20191203
  2. KEYTRUDA [Suspect]
     Active Substance: PEMBROLIZUMAB
     Dosage: UNK
     Dates: start: 202001, end: 20200217
  3. CARBOPLATIN. [Suspect]
     Active Substance: CARBOPLATIN
     Dosage: UNK
     Dates: start: 202001
  4. CARBOPLATIN. [Suspect]
     Active Substance: CARBOPLATIN
     Indication: NON-SMALL CELL LUNG CANCER
     Dosage: UNK
     Dates: start: 20191203
  5. KEYTRUDA [Suspect]
     Active Substance: PEMBROLIZUMAB
     Indication: NON-SMALL CELL LUNG CANCER
     Dosage: UNK
     Dates: start: 20191203
  6. MELOXICAM. [Suspect]
     Active Substance: MELOXICAM
  7. ALIMTA [Suspect]
     Active Substance: PEMETREXED DISODIUM
     Dosage: UNK
     Dates: start: 202001

REACTIONS (4)
  - Malignant neoplasm progression [Unknown]
  - Renal disorder [Recovering/Resolving]
  - Acute kidney injury [Recovering/Resolving]
  - Immune-mediated renal disorder [Recovering/Resolving]

NARRATIVE: CASE EVENT DATE: 20200217
